FAERS Safety Report 14618179 (Version 1)
Quarter: 2018Q1

REPORT INFORMATION
  Report Type: Spontaneous
  Country: FI (occurrence: FI)
  Receive Date: 20180309
  Receipt Date: 20180309
  Transmission Date: 20180509
  Serious: Yes (Hospitalization)
  Sender: FDA-Public Use
  Company Number: FI-JNJFOC-20180306932

PATIENT
  Sex: Male

DRUGS (2)
  1. XARELTO [Suspect]
     Active Substance: RIVAROXABAN
     Indication: PRODUCT USED FOR UNKNOWN INDICATION
     Route: 048
  2. KLEXANE [Concomitant]
     Active Substance: ENOXAPARIN
     Indication: SURGERY
     Route: 065
     Dates: start: 201802

REACTIONS (3)
  - Medication error [Unknown]
  - Hip fracture [Unknown]
  - Haemoptysis [Unknown]

NARRATIVE: CASE EVENT DATE: 201802
